FAERS Safety Report 8570161-1 (Version None)
Quarter: 2012Q3

REPORT INFORMATION
  Report Type: 
  Country: None (occurrence: None)
  Receive Date: 20120803
  Receipt Date: 20120730
  Transmission Date: 20120928
  Serious: Yes (Hospitalization, Other)
  Sender: FDA-Public Use
  Company Number: US-ABBOTT-12P-163-0956965-00

PATIENT
  Sex: Female
  Weight: 49.032 kg

DRUGS (5)
  1. MULTI-VITAMINS [Concomitant]
     Indication: PREGNANCY
  2. HUMIRA [Suspect]
     Route: 058
     Dates: start: 20120501, end: 20120601
  3. TPN [Concomitant]
     Indication: CROHN'S DISEASE
     Route: 042
     Dates: start: 20120301, end: 20120301
  4. HUMIRA [Suspect]
     Indication: CROHN'S DISEASE
     Route: 058
     Dates: start: 20110101, end: 20120301
  5. HUMIRA [Suspect]
     Route: 058
     Dates: start: 20120301, end: 20120501

REACTIONS (23)
  - POST PROCEDURAL COMPLICATION [None]
  - UNRESPONSIVE TO STIMULI [None]
  - ABDOMINAL ADHESIONS [None]
  - INFLAMMATION [None]
  - PREMATURE LABOUR [None]
  - LOSS OF CONSCIOUSNESS [None]
  - VOMITING [None]
  - BLOOD PRESSURE DECREASED [None]
  - INTRA-ABDOMINAL HAEMORRHAGE [None]
  - HEART RATE INCREASED [None]
  - PARENTERAL NUTRITION [None]
  - FLUSHING [None]
  - GASTROINTESTINAL DISORDER [None]
  - INFECTION [None]
  - HYPOGLYCAEMIA [None]
  - NAUSEA [None]
  - DUODENAL PERFORATION [None]
  - IMPAIRED HEALING [None]
  - MEDICAL DEVICE COMPLICATION [None]
  - ABDOMINAL PAIN [None]
  - EYE MOVEMENT DISORDER [None]
  - LARGE INTESTINE PERFORATION [None]
  - CARDIO-RESPIRATORY ARREST [None]
